FAERS Safety Report 7380165-2 (Version None)
Quarter: 2011Q1

REPORT INFORMATION
  Report Type: 
  Country: None (occurrence: None)
  Receive Date: 20110329
  Receipt Date: 20100921
  Transmission Date: 20110831
  Serious: No
  Sender: FDA-Public Use
  Company Number: US-MYLANLABS-2010S1017722

PATIENT
  Age: 55 Year
  Sex: Female

DRUGS (3)
  1. PROGESTERONE [Concomitant]
     Route: 065
  2. ESTRADIOL [Suspect]
     Route: 062
  3. TESTOSTERONE [Concomitant]
     Route: 065

REACTIONS (1)
  - PSEUDOLYMPHOMA [None]
